FAERS Safety Report 7988198-X (Version None)
Quarter: 2011Q4

REPORT INFORMATION
  Report Type: 
  Country: None (occurrence: None)
  Receive Date: 20111216
  Receipt Date: 20101215
  Transmission Date: 20120403
  Serious: No
  Sender: FDA-Public Use
  Company Number: US-BRISTOL-MYERS SQUIBB COMPANY-15444508

PATIENT
  Age: 11 Year

DRUGS (1)
  1. ABILIFY [Suspect]
     Dosage: RECEIVED OVER A MONTH TIME

REACTIONS (3)
  - SOMNOLENCE [None]
  - OVERDOSE [None]
  - TREMOR [None]
